FAERS Safety Report 9336930 (Version 1)
Quarter: 2013Q2

REPORT INFORMATION
  Report Type: Spontaneous
  Country: CN (occurrence: CN)
  Receive Date: 20130607
  Receipt Date: 20130607
  Transmission Date: 20140414
  Serious: Yes (Hospitalization)
  Sender: FDA-Public Use
  Company Number: CN-EISAI INC-E2020-12434-SPO-CN

PATIENT
  Age: 74 Year
  Sex: Male
  Weight: 55 kg

DRUGS (1)
  1. ARICEPT [Suspect]
     Indication: DEMENTIA ALZHEIMER^S TYPE
     Route: 048
     Dates: start: 20121110, end: 20121112

REACTIONS (3)
  - Mania [Recovering/Resolving]
  - Delirium [Recovering/Resolving]
  - Dysphoria [Recovering/Resolving]
